FAERS Safety Report 5425839-5 (Version None)
Quarter: 2007Q3

REPORT INFORMATION
  Report Type: 
  Country: None (occurrence: None)
  Receive Date: 20070824
  Receipt Date: 20070824
  Transmission Date: 20080115
  Serious: Yes (Hospitalization)
  Sender: FDA-Public Use
  Company Number: None

PATIENT
  Sex: Female
  Weight: 73.9363 kg

DRUGS (1)
  1. CITALOPRAM HYDROBROMIDE [Suspect]
     Indication: MIGRAINE
     Dosage: 20MG (1 TAB) ONCE DAILY PO ~10:30 AM
     Route: 048
     Dates: start: 20070811

REACTIONS (7)
  - DIARRHOEA [None]
  - DIZZINESS [None]
  - FLUSHING [None]
  - MYDRIASIS [None]
  - NAUSEA [None]
  - TACHYCARDIA [None]
  - TREMOR [None]
